FAERS Safety Report 5712003-5 (Version None)
Quarter: 2008Q2

REPORT INFORMATION
  Report Type: 
  Country: None (occurrence: None)
  Receive Date: 20080416
  Receipt Date: 20080331
  Transmission Date: 20081010
  Serious: Yes (Death, Hospitalization)
  Sender: FDA-Public Use
  Company Number: DSA_31675_2008

PATIENT
  Age: 34 Year
  Sex: Male

DRUGS (4)
  1. ORFIDAL (ORFIDAL - LORAZEPAM) 1 MG [Suspect]
     Indication: SOMNOLENCE
     Dosage: 1 MG QD ORAL
     Route: 048
     Dates: start: 20080101, end: 20080207
  2. BESITRAN (BESITRAN - SERTRALINE HYDROCHLORIDE) [Suspect]
     Indication: DEPRESSION
     Dosage: 100 MG QD ORAL
     Route: 048
     Dates: start: 20080101, end: 20080207
  3. LAMOTRIGINE [Concomitant]
  4. SEROQUEL [Concomitant]

REACTIONS (17)
  - APATHY [None]
  - BLOOD PRESSURE INCREASED [None]
  - CARDIO-RESPIRATORY ARREST [None]
  - CYSTITIS HAEMORRHAGIC [None]
  - GASTRITIS HAEMORRHAGIC [None]
  - HEPATIC STEATOSIS [None]
  - HEPATOTOXICITY [None]
  - LUNG DISORDER [None]
  - MYOCARDIAL INFARCTION [None]
  - NERVOUSNESS [None]
  - PROCEDURAL COMPLICATION [None]
  - PULMONARY EMBOLISM [None]
  - RENAL FAILURE ACUTE [None]
  - RENAL HYPERTROPHY [None]
  - RIB FRACTURE [None]
  - RIGHT VENTRICULAR HYPERTROPHY [None]
  - SPLENOMEGALY [None]
